FAERS Safety Report 11784079 (Version 1)
Quarter: 2015Q4

REPORT INFORMATION
  Report Type: Spontaneous
  Country: US (occurrence: US)
  Receive Date: 20151128
  Receipt Date: 20151128
  Transmission Date: 20160305
  Serious: No
  Sender: FDA-Public Use
  Company Number: US-NOVEN PHARMACEUTICALS, INC.-US2015000899

PATIENT
  Age: 29 Year
  Sex: Female

DRUGS (2)
  1. MINIVELLE [Suspect]
     Active Substance: ESTRADIOL
     Dosage: 0.0375 MG, QD
     Route: 062
     Dates: start: 20151004
  2. MINIVELLE [Suspect]
     Active Substance: ESTRADIOL
     Indication: POSTPARTUM DISORDER
     Dosage: 0.0375 MG, QD
     Route: 062
     Dates: end: 20150930

REACTIONS (5)
  - Headache [Recovered/Resolved]
  - Feeling cold [Recovered/Resolved]
  - Pain [Recovered/Resolved]
  - Off label use [Not Recovered/Not Resolved]
  - Suppressed lactation [Unknown]

NARRATIVE: CASE EVENT DATE: 20151004
